FAERS Safety Report 8425709-4 (Version None)
Quarter: 2012Q2

REPORT INFORMATION
  Report Type: 
  Country: None (occurrence: None)
  Receive Date: 20120611
  Receipt Date: 20120605
  Transmission Date: 20120825
  Serious: Yes (Other)
  Sender: FDA-Public Use
  Company Number: PHEH2012US011449

PATIENT
  Sex: Female

DRUGS (1)
  1. LESCOL XL [Suspect]

REACTIONS (2)
  - LOWER LIMB FRACTURE [None]
  - FALL [None]
